FAERS Safety Report 12797295 (Version 1)
Quarter: 2016Q3

REPORT INFORMATION
  Report Type: Other
  Country: GB (occurrence: GB)
  Receive Date: 20160929
  Receipt Date: 20160929
  Transmission Date: 20161109
  Serious: Yes (Death, Other)
  Sender: FDA-Public Use
  Company Number: GB-ACTELION-A-CH2016-142766

PATIENT
  Age: 35 Year
  Sex: Female

DRUGS (2)
  1. OPSUMIT [Suspect]
     Active Substance: MACITENTAN
     Indication: PULMONARY HYPERTENSION
     Route: 048
  2. TADALAFIL [Concomitant]
     Active Substance: TADALAFIL
     Indication: PULMONARY HYPERTENSION

REACTIONS (7)
  - Vomiting [Unknown]
  - Pulmonary hypertensive crisis [Fatal]
  - Headache [Unknown]
  - Pulmonary hypertension [Unknown]
  - Metastases to central nervous system [Unknown]
  - Tumour embolism [Unknown]
  - Choriocarcinoma [Unknown]
